FAERS Safety Report 10029457 (Version 1)
Quarter: 2014Q1

REPORT INFORMATION
  Report Type: Report from Study
  Country: TH (occurrence: TH)
  Receive Date: 20140322
  Receipt Date: 20140322
  Transmission Date: 20141002
  Serious: Yes (Death, Other)
  Sender: FDA-Public Use
  Company Number: PHHY2014TH034328

PATIENT
  Age: 85 Year
  Sex: Male

DRUGS (1)
  1. ACLASTA [Suspect]
     Indication: OSTEOPOROSIS
     Dosage: UNK UKN, UNK
     Route: 042
     Dates: start: 201311

REACTIONS (7)
  - Fatigue [Fatal]
  - Pain [Fatal]
  - Decreased appetite [Fatal]
  - Asthenia [Fatal]
  - Diabetic ulcer [Unknown]
  - Ulcer haemorrhage [Unknown]
  - Pain in extremity [Unknown]
